FAERS Safety Report 24314404 (Version 2)
Quarter: 2024Q4

REPORT INFORMATION
  Report Type: Report from Study
  Country: US (occurrence: US)
  Receive Date: 20240913
  Receipt Date: 20241121
  Transmission Date: 20250114
  Serious: Yes (Death, Other)
  Sender: AMNEAL
  Company Number: US-AMNEAL PHARMACEUTICALS-2024-AMRX-03299

PATIENT
  Sex: Female

DRUGS (4)
  1. CARBIDOPA\LEVODOPA [Suspect]
     Active Substance: CARBIDOPA\LEVODOPA
     Indication: Parkinson^s disease
     Dosage: 48.75-195MG, 1 CAPSULE IN MORNING, 2 CAPSULES IN AFTERNOON, 1 CAPSULE IN EVENING AND 2 CAPSULES AT B
     Route: 048
  2. CARBIDOPA\LEVODOPA [Suspect]
     Active Substance: CARBIDOPA\LEVODOPA
     Dosage: 48.75-195MG, 2 CAPSULES IN MORNING, 1 CAPSULE IN AFTERNOON, 2 CAPSULES IN EVENING AND 1 CAPSULE AT B
     Route: 048
     Dates: start: 20211210
  3. CARBIDOPA\LEVODOPA [Suspect]
     Active Substance: CARBIDOPA\LEVODOPA
     Dosage: 48.75-195MG, 2 CAPSULES IN MORNING, 2 CAPSULE IN AFTERNOON, 1 CAPSULE IN EVENING AND 1 CAPSULE AT BE
     Route: 048
     Dates: start: 20220524
  4. CARBIDOPA\LEVODOPA [Suspect]
     Active Substance: CARBIDOPA\LEVODOPA
     Dosage: 48.75-195MG, 2 CAPSULES, 4X/DAY (AT 7:30 AM, 12:30 PM, 5:30 PM, 10:30)
     Route: 048
     Dates: start: 20231218

REACTIONS (5)
  - Parkinson^s disease [Fatal]
  - Acute respiratory failure [Fatal]
  - Hypoxia [Fatal]
  - Pulmonary oedema [Fatal]
  - Hypokalaemia [Fatal]
